FAERS Safety Report 23989531 (Version 6)
Quarter: 2024Q3

REPORT INFORMATION
  Report Type: Spontaneous
  Country: US (occurrence: US)
  Receive Date: 20240619
  Receipt Date: 20240920
  Transmission Date: 20241016
  Serious: No
  Sender: PFIZER
  Company Number: US-PFIZER INC-202400193180

PATIENT
  Age: 14 Year
  Sex: Male
  Weight: 52.16 kg

DRUGS (3)
  1. GENOTROPIN [Suspect]
     Active Substance: SOMATROPIN
     Indication: Short stature
     Dosage: 2.2 MG, ALTERNATING WITH 2.4 MG
     Dates: start: 202406
  2. GENOTROPIN [Suspect]
     Active Substance: SOMATROPIN
     Dosage: 2.4 MG, ALTERNATING WITH 2.2 MG
     Dates: start: 202406
  3. GENOTROPIN [Suspect]
     Active Substance: SOMATROPIN
     Dosage: 2.4 MG, DAILY (7 DAYS PER WEEK)

REACTIONS (2)
  - Drug dose omission by device [Unknown]
  - Device leakage [Unknown]

NARRATIVE: CASE EVENT DATE: 20240601
